FAERS Safety Report 8880926 (Version 1)
Quarter: 2012Q4

REPORT INFORMATION
  Report Type: 
  Country: IN (occurrence: IN)
  Receive Date: 20121101
  Receipt Date: 20121101
  Transmission Date: 20130627
  Serious: Yes (Other)
  Sender: FDA-Public Use
  Company Number: IN-BRISTOL-MYERS SQUIBB COMPANY-17056573

PATIENT
  Age: 30 Year
  Sex: Female

DRUGS (1)
  1. TRIAMCINOLONE ACE INJ [Suspect]
     Dosage: Triamcinolone 40mg in 1ml of 2% lidocaine

REACTIONS (1)
  - Herpes zoster [Recovered/Resolved]
